FAERS Safety Report 20675802 (Version 1)
Quarter: 2022Q2

REPORT INFORMATION
  Report Type: Report from Study
  Country: US (occurrence: US)
  Receive Date: 20220405
  Receipt Date: 20220405
  Transmission Date: 20220721
  Serious: Yes (Death, Other)
  Sender: FDA-Public Use
  Company Number: US-TAKEDA-2022TUS022118

PATIENT
  Sex: Female

DRUGS (4)
  1. TEDUGLUTIDE [Suspect]
     Active Substance: TEDUGLUTIDE
     Indication: Product used for unknown indication
     Dosage: 0.05 MG/KG, UNKNOWN
     Route: 058
     Dates: end: 201611
  2. TEDUGLUTIDE [Suspect]
     Active Substance: TEDUGLUTIDE
     Indication: Product used for unknown indication
     Dosage: 0.05 MG/KG, UNKNOWN
     Route: 058
     Dates: end: 201611
  3. TEDUGLUTIDE [Suspect]
     Active Substance: TEDUGLUTIDE
     Indication: Product used for unknown indication
     Dosage: 0.05 MG/KG, UNKNOWN
     Route: 058
     Dates: end: 201611
  4. TEDUGLUTIDE [Suspect]
     Active Substance: TEDUGLUTIDE
     Indication: Product used for unknown indication
     Dosage: 0.05 MG/KG, UNKNOWN
     Route: 058
     Dates: end: 201611

REACTIONS (2)
  - Death [Fatal]
  - Leukaemia [Unknown]

NARRATIVE: CASE EVENT DATE: 20160101
